FAERS Safety Report 5737144-8 (Version None)
Quarter: 2008Q2

REPORT INFORMATION
  Report Type: 
  Country: None (occurrence: None)
  Receive Date: 20080514
  Receipt Date: 20080507
  Transmission Date: 20081010
  Serious: Yes (Other)
  Sender: FDA-Public Use
  Company Number: US-NOVOPROD-273186

PATIENT
  Age: 38 Year
  Sex: Male

DRUGS (5)
  1. NOVOLOG [Suspect]
     Indication: INSULIN-REQUIRING TYPE 2 DIABETES MELLITUS
     Dosage: SLIDING SCALE IU, TID A.C.MEALS
     Route: 058
     Dates: start: 20070501
  2. NOVOLOG [Suspect]
     Dosage: SLIDING SCALE IU, TID A.C.MEALS
     Route: 058
  3. LANTUS [Concomitant]
     Indication: INSULIN-REQUIRING TYPE 2 DIABETES MELLITUS
     Dosage: UNK IU, QD AT NIGHT
     Route: 058
  4. PROVIGIL [Concomitant]
     Indication: SLEEP APNOEA SYNDROME
     Dosage: 2 TAB, BID
     Route: 048
  5. LOTREL                             /01289101/ [Concomitant]
     Indication: HYPERTENSION
     Dosage: 1 TAB, QD
     Route: 048

REACTIONS (1)
  - MEDICAL DEVICE COMPLICATION [None]
